FAERS Safety Report 16069772 (Version 2)
Quarter: 2019Q1

REPORT INFORMATION
  Report Type: Spontaneous
  Country: BR (occurrence: BR)
  Receive Date: 20190314
  Receipt Date: 20190318
  Transmission Date: 20190418
  Serious: Yes (Other)
  Sender: FDA-Public Use
  Company Number: BR-009507513-1903BRA001344

PATIENT
  Sex: Female
  Weight: 72 kg

DRUGS (4)
  1. JANUVIA [Suspect]
     Active Substance: SITAGLIPTIN PHOSPHATE
     Indication: DIABETES MELLITUS
     Dosage: 50 MILLIGRAM, BID (1 TABLET BY THE MORNING AND 1 TABLET AT NIGHT)
     Route: 048
     Dates: start: 201811, end: 201903
  2. JANUVIA [Suspect]
     Active Substance: SITAGLIPTIN PHOSPHATE
     Indication: DIABETES MELLITUS
     Dosage: 25 MILLIGRAM, BID (1 TABLET BY THE MORNING AND 1 TABLET AT NIGHT)
     Route: 048
     Dates: end: 201811
  3. JANUVIA [Suspect]
     Active Substance: SITAGLIPTIN PHOSPHATE
     Dosage: 25 MILLIGRAM
     Route: 048
     Dates: start: 20190307
  4. MERITOR [Concomitant]
     Active Substance: GLIMEPIRIDE\METFORMIN
     Indication: DIABETES MELLITUS
     Dosage: 1000 MILLIGRAM

REACTIONS (16)
  - Therapy non-responder [Unknown]
  - Anal incontinence [Unknown]
  - Peripheral swelling [Unknown]
  - Product dispensing error [Unknown]
  - Product dose omission [Unknown]
  - Urinary incontinence [Unknown]
  - Inability to afford medication [Unknown]
  - Poor quality product administered [Unknown]
  - Adverse event [Recovered/Resolved]
  - Thrombosis [Unknown]
  - Diabetes mellitus inadequate control [Unknown]
  - Irritability [Unknown]
  - Skin exfoliation [Unknown]
  - Inappropriate schedule of product administration [Unknown]
  - Blood glucose abnormal [Unknown]
  - Product packaging quantity issue [Unknown]

NARRATIVE: CASE EVENT DATE: 2019
